FAERS Safety Report 7235029-1 (Version None)
Quarter: 2011Q1

REPORT INFORMATION
  Report Type: 
  Country: None (occurrence: None)
  Receive Date: 20110114
  Receipt Date: 20110114
  Transmission Date: 20110831
  Serious: Yes (Death, Other)
  Sender: FDA-Public Use
  Company Number: None

PATIENT
  Age: 76 Year
  Sex: Female
  Weight: 58.9676 kg

DRUGS (1)
  1. SEROQUEL [Suspect]
     Indication: PSYCHOTIC DISORDER
     Dosage: 25MG 2 X DAILY PO
     Route: 048
     Dates: start: 20101222, end: 20110109

REACTIONS (3)
  - FEELING COLD [None]
  - VOMITING [None]
  - MYOCARDIAL INFARCTION [None]
